FAERS Safety Report 4514764-X (Version None)
Quarter: 2004Q4

REPORT INFORMATION
  Report Type: 
  Country: None (occurrence: None)
  Receive Date: 20041201
  Receipt Date: 20041119
  Transmission Date: 20050328
  Serious: Yes (Other)
  Sender: FDA-Public Use
  Company Number: US-JNJFOC-20041003599

PATIENT
  Sex: Female
  Weight: 74.39 kg

DRUGS (4)
  1. REMICADE [Suspect]
     Route: 042
  2. REMICADE [Suspect]
     Route: 042
  3. REMICADE [Suspect]
     Route: 042
  4. REMICADE [Suspect]
     Indication: CROHN'S DISEASE
     Dosage: HAD 3 TREATMENTS IN ? 1998
     Route: 042

REACTIONS (3)
  - IRIS DISORDER [None]
  - ULCER [None]
  - UNEXPECTED THERAPEUTIC DRUG EFFECT [None]
